FAERS Safety Report 12265922 (Version 1)
Quarter: 2016Q2

REPORT INFORMATION
  Report Type: Spontaneous
  Country: US (occurrence: US)
  Receive Date: 20160413
  Receipt Date: 20160413
  Transmission Date: 20160815
  Serious: Yes (Other)
  Sender: FDA-Public Use
  Company Number: US-ASTRAZENECA-2016SE34707

PATIENT
  Age: 24982 Day
  Sex: Female
  Weight: 108.9 kg

DRUGS (4)
  1. METFORMIN [Concomitant]
     Active Substance: METFORMIN HYDROCHLORIDE
  2. BRILINTA [Suspect]
     Active Substance: TICAGRELOR
     Indication: PROPHYLAXIS
     Route: 048
     Dates: start: 201603
  3. FISH OIL [Concomitant]
     Active Substance: FISH OIL
  4. ASPIRIN. [Concomitant]
     Active Substance: ASPIRIN

REACTIONS (10)
  - Discomfort [Unknown]
  - Dyspnoea [Unknown]
  - Pain in extremity [Unknown]
  - Sleep disorder due to general medical condition, insomnia type [Unknown]
  - Feeling hot [Unknown]
  - Activities of daily living impaired [Unknown]
  - Increased tendency to bruise [Unknown]
  - Peripheral swelling [Unknown]
  - Hyperhidrosis [Unknown]
  - Musculoskeletal stiffness [Unknown]

NARRATIVE: CASE EVENT DATE: 2016
